FAERS Safety Report 9380524 (Version 2)
Quarter: 2013Q3

REPORT INFORMATION
  Report Type: Spontaneous
  Country: US (occurrence: US)
  Receive Date: 20130702
  Receipt Date: 20130802
  Transmission Date: 20140515
  Serious: No
  Sender: FDA-Public Use
  Company Number: US-VERTEX PHARMACEUTICALS INC-2013-007605

PATIENT
  Age: 59 Year
  Sex: Female
  Weight: 51 kg

DRUGS (4)
  1. INCIVEK [Suspect]
     Indication: HEPATITIS C
     Dosage: 750 MG, TID
     Route: 048
     Dates: start: 20130613
  2. RIBAVIRIN [Suspect]
     Indication: HEPATITIS C
     Dosage: 600 MG AM, 400 MG PM
     Dates: start: 20130613
  3. RIBAVIRIN [Suspect]
     Dosage: 800 MG, QD
     Dates: start: 20130626
  4. PEGASYS [Suspect]
     Indication: HEPATITIS C
     Dosage: 180 ?G, WEEKLY
     Route: 058
     Dates: start: 20130613

REACTIONS (17)
  - Dyspnoea [Unknown]
  - Palpitations [Unknown]
  - Disturbance in attention [Unknown]
  - Irritability [Unknown]
  - Neutrophil count decreased [Unknown]
  - Decreased appetite [Unknown]
  - Pyrexia [Unknown]
  - Gingival pain [Unknown]
  - Cheilitis [Unknown]
  - Mouth ulceration [Unknown]
  - Fatigue [Not Recovered/Not Resolved]
  - Drug eruption [Recovered/Resolved]
  - Anaemia [Not Recovered/Not Resolved]
  - Painful defaecation [Not Recovered/Not Resolved]
  - Rectal haemorrhage [Not Recovered/Not Resolved]
  - Pruritus [Recovered/Resolved]
  - Nausea [Not Recovered/Not Resolved]
